FAERS Safety Report 13101704 (Version 1)
Quarter: 2017Q1

REPORT INFORMATION
  Report Type: Spontaneous
  Country: US (occurrence: US)
  Receive Date: 20170110
  Receipt Date: 20170110
  Transmission Date: 20170428
  Serious: No
  Sender: FDA-Public Use
  Company Number: US-ASTRAZENECA-2017SE02170

PATIENT
  Sex: Female

DRUGS (5)
  1. NEXIUM [Suspect]
     Active Substance: ESOMEPRAZOLE MAGNESIUM
     Indication: DYSPEPSIA
     Dosage: 40.0MG UNKNOWN
     Route: 048
  2. OMEPRAZOLE RX [Suspect]
     Active Substance: OMEPRAZOLE
     Route: 048
  3. 2 TYPES OF INSULIN [Concomitant]
  4. NEXIUM [Suspect]
     Active Substance: ESOMEPRAZOLE MAGNESIUM
     Indication: DYSPEPSIA
     Dosage: 40.0MG UNKNOWN
     Route: 048
  5. NEXIUM [Suspect]
     Active Substance: ESOMEPRAZOLE MAGNESIUM
     Indication: HIATUS HERNIA
     Dosage: 40.0MG UNKNOWN
     Route: 048

REACTIONS (6)
  - Diabetes mellitus [Unknown]
  - Dyspepsia [Unknown]
  - Intentional product misuse [Unknown]
  - Hiatus hernia [Unknown]
  - Renal failure [Unknown]
  - Hypertension [Unknown]
